FAERS Safety Report 7545424-9 (Version None)
Quarter: 2011Q2

REPORT INFORMATION
  Report Type: 
  Country: None (occurrence: None)
  Receive Date: 20110614
  Receipt Date: 20110523
  Transmission Date: 20111010
  Serious: Yes (Hospitalization, Other)
  Sender: FDA-Public Use
  Company Number: US-BAYER-201041966NA

PATIENT
  Age: 20 Year
  Sex: Female
  Weight: 65.76 kg

DRUGS (8)
  1. YASMIN [Suspect]
     Indication: PRODUCT USED FOR UNKNOWN INDICATION
     Route: 048
     Dates: start: 20071001, end: 20091001
  2. PEPCID [Concomitant]
  3. YAZ [Suspect]
     Indication: DYSMENORRHOEA
  4. IBUPROFEN [Concomitant]
  5. YAZ [Suspect]
     Indication: MENORRHAGIA
     Dosage: UNK UNK, UNK
     Route: 048
     Dates: start: 20071001, end: 20091101
  6. YAZ [Suspect]
     Indication: ACNE
  7. PERCOCET [Concomitant]
  8. CIPROFLOXACIN HCL [Concomitant]
     Dosage: 500 MG, BID
     Route: 048
     Dates: start: 20090127

REACTIONS (5)
  - GALLBLADDER DISORDER [None]
  - PROCEDURAL PAIN [None]
  - BILIARY DYSKINESIA [None]
  - ABDOMINAL PAIN UPPER [None]
  - DYSPEPSIA [None]
